FAERS Safety Report 20038324 (Version 1)
Quarter: 2021Q4

REPORT INFORMATION
  Report Type: Spontaneous
  Country: PT (occurrence: PT)
  Receive Date: 20211105
  Receipt Date: 20211105
  Transmission Date: 20220303
  Serious: Yes (Life-Threatening, Other)
  Sender: FDA-Public Use
  Company Number: PT-MYLANLABS-2021M1080959

PATIENT
  Age: 68 Year
  Sex: Male

DRUGS (3)
  1. EPINEPHRINE [Suspect]
     Active Substance: EPINEPHRINE
     Indication: Anaphylactic shock
     Dosage: UNK
  2. EPHEDRINE [Suspect]
     Active Substance: EPHEDRINE
     Indication: Anaphylactic shock
     Dosage: UNK
  3. NOREPINEPHRINE [Suspect]
     Active Substance: NOREPINEPHRINE
     Indication: Anaphylactic shock
     Dosage: UNK

REACTIONS (1)
  - Drug ineffective [Unknown]
